FAERS Safety Report 22273068 (Version 1)
Quarter: 2023Q2

REPORT INFORMATION
  Report Type: Report from Study
  Country: US (occurrence: None)
  Receive Date: 20230502
  Receipt Date: 20230502
  Transmission Date: 20230721
  Serious: Yes (Hospitalization)
  Sender: FDA-Public Use
  Company Number: US-Eisai Medical Research-EC-2023-139065

PATIENT
  Age: 74 Year
  Sex: Female
  Weight: 58.9 kg

DRUGS (39)
  1. LENVIMA [Suspect]
     Active Substance: LENVATINIB
     Indication: Renal cancer
     Route: 048
     Dates: start: 20210709, end: 202203
  2. LENVIMA [Suspect]
     Active Substance: LENVATINIB
     Route: 048
     Dates: start: 2022, end: 202208
  3. LENVIMA [Suspect]
     Active Substance: LENVATINIB
     Route: 048
     Dates: start: 202208, end: 202301
  4. LENVIMA [Suspect]
     Active Substance: LENVATINIB
     Route: 048
     Dates: start: 2023, end: 20230410
  5. MODERNA COVID-19 VACCINE [Concomitant]
     Active Substance: ELASOMERAN
     Indication: Product used for unknown indication
     Dosage: DOSAGE AND FREQUENCY NOT PROVIDED
     Dates: start: 20210821
  6. EVEROLIMUS [Concomitant]
     Active Substance: EVEROLIMUS
     Indication: Product used for unknown indication
     Dosage: DOSE AND FREQUENCY UNKNOWN
     Route: 065
     Dates: end: 202208
  7. CALCIUM CARBONATE [Concomitant]
     Active Substance: CALCIUM CARBONATE
  8. COLACE [Concomitant]
     Active Substance: DOCUSATE SODIUM
  9. IRON [Concomitant]
     Active Substance: IRON
  10. MIRALAX [Concomitant]
     Active Substance: POLYETHYLENE GLYCOL 3350
  11. POTASSIUM GLUCONATE [Concomitant]
     Active Substance: POTASSIUM GLUCONATE
  12. VITAMIN D3 [Concomitant]
     Active Substance: CHOLECALCIFEROL
  13. VITAMIN E [Concomitant]
     Active Substance: .ALPHA.-TOCOPHEROL
  14. IPRATROPIUM BROMIDE [Concomitant]
     Active Substance: IPRATROPIUM BROMIDE\IPRATROPIUM BROMIDE ANHYDROUS
  15. OXYCODONE HYDROCHLORIDE [Concomitant]
     Active Substance: OXYCODONE HYDROCHLORIDE
  16. OXYCONTIN [Concomitant]
     Active Substance: OXYCODONE HYDROCHLORIDE
  17. TEMAZEPAM [Concomitant]
     Active Substance: TEMAZEPAM
  18. LIDOCAINE [Concomitant]
     Active Substance: LIDOCAINE
  19. ONDANSETRON [Concomitant]
     Active Substance: ONDANSETRON
  20. GABAPENTIN [Concomitant]
     Active Substance: GABAPENTIN
  21. SYNTHROID [Concomitant]
     Active Substance: LEVOTHYROXINE SODIUM
  22. LOSARTAN POTASSIUM [Concomitant]
     Active Substance: LOSARTAN POTASSIUM
  23. INLYTA [Concomitant]
     Active Substance: AXITINIB
  24. VOTRIENT [Concomitant]
     Active Substance: PAZOPANIB HYDROCHLORIDE
  25. PROCHLORPERAZINE [Concomitant]
     Active Substance: PROCHLORPERAZINE
  26. TEMAZEPAM [Concomitant]
     Active Substance: TEMAZEPAM
  27. CETAPHIL DAILY FACIAL MOISTURIZER WITH SUNCREEN SPF 50 [Concomitant]
     Active Substance: OCTINOXATE\OCTISALATE\OCTOCRYLENE\OXYBENZONE\TITANIUM DIOXIDE
  28. HYDRALAZINE [Concomitant]
     Active Substance: HYDRALAZINE HYDROCHLORIDE
  29. HYDROCORTISONE [Concomitant]
     Active Substance: HYDROCORTISONE
  30. METOPROLOL [Concomitant]
     Active Substance: METOPROLOL
  31. MIRTAZAPINE [Concomitant]
     Active Substance: MIRTAZAPINE
  32. NIFEDIPINE [Concomitant]
     Active Substance: NIFEDIPINE
  33. CALCIUM [Concomitant]
     Active Substance: CALCIUM
  34. FUROSEMIDE [Concomitant]
     Active Substance: FUROSEMIDE
  35. OMEPRAZOLE [Concomitant]
     Active Substance: OMEPRAZOLE
  36. LEVOTHYROXINE [Concomitant]
     Active Substance: LEVOTHYROXINE
  37. DICLOFENAC [Concomitant]
     Active Substance: DICLOFENAC
  38. AZELASTINE HYDROCHLORIDE\FLUTICASONE PROPIONATE [Concomitant]
     Active Substance: AZELASTINE HYDROCHLORIDE\FLUTICASONE PROPIONATE
  39. NARCAN [Concomitant]
     Active Substance: NALOXONE HYDROCHLORIDE

REACTIONS (5)
  - Blood pressure increased [Unknown]
  - Diarrhoea [Unknown]
  - Vomiting [Unknown]
  - Nausea [Unknown]
  - Conjunctival haemorrhage [Unknown]

NARRATIVE: CASE EVENT DATE: 20230410
